FAERS Safety Report 9999085 (Version 1)
Quarter: 2014Q1

REPORT INFORMATION
  Report Type: Spontaneous
  Country: TR (occurrence: None)
  Receive Date: 20140310
  Receipt Date: 20140310
  Transmission Date: 20141002
  Serious: Yes (Other)
  Sender: FDA-Public Use
  Company Number: VAL_03001_2014

PATIENT
  Sex: Male

DRUGS (3)
  1. CARBAMAZEPINE [Suspect]
     Indication: EPILEPSY
     Dosage: DF [DAILY DOSE BETWEEN 1200 AND 1400 MG]
  2. CLARITHROMYCIN [Suspect]
     Indication: GASTRITIS
     Dosage: DF
  3. PROTON PUMP INHIBITORS [Concomitant]

REACTIONS (13)
  - Toxicity to various agents [None]
  - Neurotoxicity [None]
  - Lethargy [None]
  - Convulsion [None]
  - Overdose [None]
  - Ataxia [None]
  - Dizziness [None]
  - Diplopia [None]
  - Nausea [None]
  - Vomiting [None]
  - Somnolence [None]
  - Electroencephalogram abnormal [None]
  - Metabolic disorder [None]
